FAERS Safety Report 8393946-3 (Version None)
Quarter: 2012Q2

REPORT INFORMATION
  Report Type: 
  Country: None (occurrence: None)
  Receive Date: 20120517
  Receipt Date: 20120508
  Transmission Date: 20120825
  Serious: Yes (Other)
  Sender: FDA-Public Use
  Company Number: 2012SP019470

PATIENT
  Age: 61 Year
  Sex: Female

DRUGS (3)
  1. DULERA [Suspect]
     Indication: ASTHMA
     Dosage: BID;INH
     Route: 055
     Dates: start: 20111221, end: 20120130
  2. AZITHROMYCIN [Concomitant]
  3. PREDNIZONE [Concomitant]

REACTIONS (10)
  - HEADACHE [None]
  - SINUSITIS [None]
  - ANXIETY [None]
  - NERVOUS SYSTEM DISORDER [None]
  - ORAL DISCOMFORT [None]
  - APHASIA [None]
  - OROPHARYNGEAL PAIN [None]
  - OROPHARYNGEAL CANDIDIASIS [None]
  - UNEVALUABLE EVENT [None]
  - GINGIVAL BLEEDING [None]
